FAERS Safety Report 9178980 (Version 1)
Quarter: 2013Q1

REPORT INFORMATION
  Report Type: Spontaneous
  Country: FR (occurrence: FR)
  Receive Date: 20130321
  Receipt Date: 20130321
  Transmission Date: 20140127
  Serious: Yes (Hospitalization)
  Sender: FDA-Public Use
  Company Number: FR-ABBOTT-13P-056-1063414-00

PATIENT
  Age: 51 Year
  Sex: Male

DRUGS (5)
  1. NORVIR [Suspect]
     Indication: HIV INFECTION
     Dates: start: 200510, end: 20130115
  2. REYATAZ [Suspect]
     Indication: HIV INFECTION
     Dates: start: 200510, end: 20130115
  3. FLUOXETINE [Suspect]
     Indication: DEPRESSION
     Route: 048
  4. TRUVADA [Concomitant]
     Indication: HIV INFECTION
     Dates: start: 200510, end: 20130115
  5. ZOLPIDEM [Concomitant]
     Indication: INSOMNIA
     Route: 048

REACTIONS (3)
  - Renal colic [Not Recovered/Not Resolved]
  - Renal failure [Not Recovered/Not Resolved]
  - Nephrolithiasis [Not Recovered/Not Resolved]
